FAERS Safety Report 6545376-4 (Version None)
Quarter: 2010Q1

REPORT INFORMATION
  Report Type: 
  Country: None (occurrence: None)
  Receive Date: 20100121
  Receipt Date: 20100119
  Transmission Date: 20100710
  Serious: No
  Sender: FDA-Public Use
  Company Number: US-ROXANE LABORATORIES, INC.-2010-RO-00057RO

PATIENT
  Sex: Female

DRUGS (1)
  1. FLUTICASONE [Suspect]
     Indication: HYPERSENSITIVITY
     Route: 045
     Dates: start: 20100116, end: 20100116

REACTIONS (2)
  - ABDOMINAL PAIN UPPER [None]
  - DIARRHOEA [None]
